FAERS Safety Report 4487731-2 (Version None)
Quarter: 2004Q4

REPORT INFORMATION
  Report Type: 
  Country: None (occurrence: None)
  Receive Date: 20041028
  Receipt Date: 20040909
  Transmission Date: 20050328
  Serious: Yes (Other)
  Sender: FDA-Public Use
  Company Number: FR-BRISTOL-MYERS SQUIBB COMPANY-12698338

PATIENT
  Age: 37 Year
  Sex: Female

DRUGS (10)
  1. ELISOR TABS [Suspect]
     Indication: HYPERLIPIDAEMIA
     Dosage: INITAL DOSE = 20MG/DAY FROM 1999-2001
     Route: 048
     Dates: start: 19990101, end: 20040819
  2. ETHINYL ESTRADIOL TAB [Interacting]
     Indication: METRORRHAGIA
     Route: 048
     Dates: start: 20040812, end: 20040813
  3. ALLOPURINOL [Concomitant]
     Indication: HYPERURICAEMIA
     Dates: start: 20040101
  4. TRIATEC [Concomitant]
     Indication: NEPHROTIC SYNDROME
     Dates: start: 20000101
  5. TRIATEC [Concomitant]
     Indication: HYPERTENSION
     Dates: start: 20000101
  6. FUROSEMIDE [Concomitant]
     Indication: RENAL FAILURE
     Dates: start: 19990101
  7. ASASANTINE [Concomitant]
     Indication: CEREBROVASCULAR ACCIDENT PROPHYLAXIS
     Dates: start: 19990101
  8. APROVEL TABS 150 MG [Concomitant]
     Indication: HYPERTENSION
     Dates: start: 19990101
  9. ESTREVA [Concomitant]
     Dates: start: 20040101
  10. PRIMOLUT-NOR TABLETS [Concomitant]
     Dates: start: 20040101

REACTIONS (5)
  - DRUG INTERACTION [None]
  - FATIGUE [None]
  - METRORRHAGIA [None]
  - RENAL FAILURE [None]
  - RHABDOMYOLYSIS [None]
